FAERS Safety Report 5651465-9 (Version None)
Quarter: 2008Q1

REPORT INFORMATION
  Report Type: 
  Country: None (occurrence: None)
  Receive Date: 20080305
  Receipt Date: 20080225
  Transmission Date: 20080703
  Serious: Yes (Hospitalization)
  Sender: FDA-Public Use
  Company Number: GB-BRISTOL-MYERS SQUIBB COMPANY-14026140

PATIENT
  Age: 70 Year
  Sex: Female

DRUGS (6)
  1. CETUXIMAB [Suspect]
     Indication: COLORECTAL CANCER
     Dosage: START DATE:12-NOV-2007.STRENGTH-2MG/ML
     Dates: start: 20071205, end: 20071205
  2. OXALIPLATIN [Suspect]
     Indication: COLORECTAL CANCER
     Dosage: START DATE: 12-NOV-2007.
     Dates: start: 20071205, end: 20071205
  3. CAPECITABINE [Suspect]
     Indication: COLORECTAL CANCER
     Dosage: START DATE:12-NOV-2007.
     Dates: start: 20071205, end: 20071205
  4. RANITIDINE [Concomitant]
     Route: 048
  5. METOCLOPRAMIDE [Concomitant]
     Route: 048
  6. DEXAMETHASONE TAB [Concomitant]
     Route: 048
     Dates: start: 20071204, end: 20071207

REACTIONS (5)
  - CEREBROVASCULAR ACCIDENT [None]
  - DIPLOPIA [None]
  - DIZZINESS [None]
  - HEMIPARESIS [None]
  - SINUS BRADYCARDIA [None]
